FAERS Safety Report 6332482-2 (Version None)
Quarter: 2009Q3

REPORT INFORMATION
  Report Type: 
  Country: None (occurrence: None)
  Receive Date: 20090828
  Receipt Date: 20080828
  Transmission Date: 20100115
  Serious: No
  Sender: FDA-Public Use
  Company Number: A0737968A

PATIENT
  Age: 65 Year
  Sex: Female
  Weight: 59.1 kg

DRUGS (2)
  1. MALARONE [Suspect]
     Indication: MALARIA
     Dosage: 250MG PER DAY
     Route: 048
     Dates: start: 20080628, end: 20080717
  2. ZOCOR [Concomitant]

REACTIONS (3)
  - BURNING SENSATION [None]
  - HYPERAESTHESIA [None]
  - PAIN OF SKIN [None]
